FAERS Safety Report 15945085 (Version 1)
Quarter: 2019Q1

REPORT INFORMATION
  Report Type: Spontaneous
  Country: SE (occurrence: SE)
  Receive Date: 20190211
  Receipt Date: 20190211
  Transmission Date: 20190417
  Serious: Yes (Life-Threatening, Hospitalization)
  Sender: FDA-Public Use
  Company Number: SE-SA-2019SA035991

PATIENT
  Age: 43 Year
  Sex: Male

DRUGS (1)
  1. GLIMEPIRIDE. [Suspect]
     Active Substance: GLIMEPIRIDE
     Indication: TYPE 2 DIABETES MELLITUS
     Dosage: UNK, UNK

REACTIONS (9)
  - Hyperglycaemia [Unknown]
  - Polydipsia [Unknown]
  - Polyuria [Unknown]
  - Ketoacidosis [Unknown]
  - Kussmaul respiration [Unknown]
  - Vomiting [Unknown]
  - Abdominal pain [Unknown]
  - Skin odour abnormal [Unknown]
  - Nausea [Unknown]
